FAERS Safety Report 4433713-6 (Version None)
Quarter: 2004Q3

REPORT INFORMATION
  Report Type: 
  Country: None (occurrence: None)
  Receive Date: 20040825
  Receipt Date: 20040825
  Transmission Date: 20050211
  Serious: Yes (Hospitalization)
  Sender: FDA-Public Use
  Company Number: None

PATIENT
  Age: 57 Year
  Sex: Male

DRUGS (7)
  1. TARGRETIN [Suspect]
     Indication: ACUTE MYELOID LEUKAEMIA
     Dosage: 225 MG PO QD
     Route: 048
     Dates: start: 20040426
  2. LEVOFLOXACIN [Concomitant]
  3. ATIVAN [Concomitant]
  4. VORICONAZOLE [Concomitant]
  5. LIPITOR [Concomitant]
  6. ATORVASTIN [Concomitant]
  7. DAPSONE [Concomitant]

REACTIONS (1)
  - FEBRILE NEUTROPENIA [None]
